FAERS Safety Report 6402441-X (Version None)
Quarter: 2009Q4

REPORT INFORMATION
  Report Type: 
  Country: None (occurrence: None)
  Receive Date: 20091015
  Receipt Date: 20091005
  Transmission Date: 20100525
  Serious: Yes (Hospitalization)
  Sender: FDA-Public Use
  Company Number: MX-ELI_LILLY_AND_COMPANY-MX200910001366

PATIENT
  Age: 25 Year
  Sex: Female
  Weight: 44 kg

DRUGS (2)
  1. HUMULIN N [Suspect]
     Dosage: 40 IU, EACH MORNING
     Route: 058
     Dates: start: 19920101
  2. HUMALOG MIX 75/25 [Suspect]
     Dosage: 20 IU, EACH EVENING
     Route: 058
     Dates: start: 19990101

REACTIONS (1)
  - KETOACIDOSIS [None]
